FAERS Safety Report 10016029 (Version 2)
Quarter: 2014Q2

REPORT INFORMATION
  Report Type: Spontaneous
  Country: US (occurrence: US)
  Receive Date: 20140317
  Receipt Date: 20140522
  Transmission Date: 20141212
  Serious: Yes (Hospitalization)
  Sender: FDA-Public Use
  Company Number: US-GILEAD-2014-0096768

PATIENT
  Age: 51 Year
  Sex: Female

DRUGS (6)
  1. LETAIRIS [Suspect]
     Indication: PULMONARY ARTERIAL HYPERTENSION
     Dosage: 10 MG, QD
     Route: 065
     Dates: start: 20120704
  2. METOPROLOL [Concomitant]
  3. LASIX                              /00032601/ [Concomitant]
  4. K-LOR [Concomitant]
  5. ASPIRIN [Concomitant]
  6. PREDNISONE [Concomitant]

REACTIONS (2)
  - Dehydration [Recovered/Resolved]
  - Viral infection [Unknown]
